FAERS Safety Report 5779520-3 (Version None)
Quarter: 2008Q2

REPORT INFORMATION
  Report Type: 
  Country: None (occurrence: None)
  Receive Date: 20080619
  Receipt Date: 20080609
  Transmission Date: 20081010
  Serious: Yes (Hospitalization, Disabling)
  Sender: FDA-Public Use
  Company Number: US-ABBOTT-08P-163-0458267-00

PATIENT
  Age: 52 Year
  Sex: Male

DRUGS (2)
  1. HYDROMORPHONE HCL [Suspect]
     Indication: BACK PAIN
     Route: 037
  2. ORAL ANALGESICS [Concomitant]
     Indication: BACK PAIN
     Route: 048

REACTIONS (5)
  - GAIT DISTURBANCE [None]
  - HYPOAESTHESIA [None]
  - INFUSION SITE MASS [None]
  - MUSCULAR WEAKNESS [None]
  - URINARY RETENTION [None]
